FAERS Safety Report 7758456-2 (Version None)
Quarter: 2011Q3

REPORT INFORMATION
  Report Type: 
  Country: None (occurrence: None)
  Receive Date: 20110919
  Receipt Date: 20110913
  Transmission Date: 20111222
  Serious: No
  Sender: FDA-Public Use
  Company Number: US-PFIZER INC-2011217191

PATIENT
  Age: 76 Year
  Sex: Female

DRUGS (11)
  1. AMLODIPINE [Concomitant]
     Indication: HYPERTENSION
     Dosage: UNK
  2. LEVOTHYROXINE SODIUM [Concomitant]
     Indication: HYPOTHYROIDISM
     Dosage: UNK
  3. BENAZEPRIL [Concomitant]
     Dosage: UNK
  4. SIMVASTATIN [Interacting]
     Indication: BLOOD CHOLESTEROL INCREASED
     Dosage: UNK
  5. ACETYLSALICYLIC ACID [Concomitant]
     Dosage: 81 MG
  6. TOPROL-XL [Interacting]
     Indication: HYPERTENSION
     Dosage: UNK
  7. VILAZODONE [Interacting]
     Indication: BIPOLAR DISORDER
     Dosage: 10 MG DAILY
     Dates: start: 20110817
  8. MELOXICAM [Concomitant]
     Indication: ARTHRITIS
     Dosage: UNK
  9. OMEPRAZOLE [Concomitant]
     Indication: GASTROOESOPHAGEAL REFLUX DISEASE
     Dosage: UNK
  10. NEURONTIN [Suspect]
     Dosage: 100 MG DAILY
  11. SEROQUEL [Interacting]
     Indication: BIPOLAR DISORDER
     Dosage: 75 MG DAILY

REACTIONS (3)
  - DRUG INTERACTION [None]
  - SOMNOLENCE [None]
  - FEELING ABNORMAL [None]
